FAERS Safety Report 9253067 (Version 1)
Quarter: 2013Q2

REPORT INFORMATION
  Report Type: Spontaneous
  Country: US (occurrence: US)
  Receive Date: 20130424
  Receipt Date: 20130424
  Transmission Date: 20140414
  Serious: No
  Sender: FDA-Public Use
  Company Number: US-009507513-1304USA014060

PATIENT
  Age: 3 Year
  Sex: Male
  Weight: 14.51 kg

DRUGS (3)
  1. CLARITIN REDITABS [Suspect]
     Indication: HYPERSENSITIVITY
     Dosage: 10 MG, ONCE
     Route: 048
     Dates: start: 20130406
  2. CLARITIN CHEWABLE TABLETS [Concomitant]
     Indication: HYPERSENSITIVITY
     Dosage: 5 MG, QD
     Dates: start: 20130403
  3. BENADRYL [Concomitant]
     Indication: PRODUCT USED FOR UNKNOWN INDICATION
     Dosage: UNK, HS
     Route: 048

REACTIONS (2)
  - Accidental overdose [Not Recovered/Not Resolved]
  - Accidental exposure to product by child [Not Recovered/Not Resolved]
